FAERS Safety Report 20726400 (Version 1)
Quarter: 2022Q2

REPORT INFORMATION
  Report Type: Spontaneous
  Country: CA (occurrence: CA)
  Receive Date: 20220419
  Receipt Date: 20220419
  Transmission Date: 20220721
  Serious: Yes (Other)
  Sender: FDA-Public Use
  Company Number: CA-JNJFOC-20220431263

PATIENT
  Age: 70 Year
  Sex: Male
  Weight: 92 kg

DRUGS (9)
  1. REMICADE [Suspect]
     Active Substance: INFLIXIMAB
     Indication: Colitis ulcerative
     Route: 042
  2. AZATHIOPRINE [Concomitant]
     Active Substance: AZATHIOPRINE
  3. CALCIUM [Concomitant]
     Active Substance: CALCIUM
  4. PRAVASTATIN [Concomitant]
     Active Substance: PRAVASTATIN
  5. PREDNISONE [Concomitant]
     Active Substance: PREDNISONE
  6. RISEDRONATE SODIUM [Concomitant]
     Active Substance: RISEDRONATE SODIUM
  7. SULFATRIM [Concomitant]
     Active Substance: SULFAMETHOXAZOLE\TRIMETHOPRIM
  8. TYLENOL [Concomitant]
     Active Substance: ACETAMINOPHEN
  9. ERGOCALCIFEROL [Concomitant]
     Active Substance: ERGOCALCIFEROL

REACTIONS (1)
  - Lung cancer metastatic [Not Recovered/Not Resolved]
